FAERS Safety Report 6283536-0 (Version None)
Quarter: 2009Q3

REPORT INFORMATION
  Report Type: 
  Country: None (occurrence: None)
  Receive Date: 20090724
  Receipt Date: 20090416
  Transmission Date: 20100115
  Serious: No
  Sender: FDA-Public Use
  Company Number: US-ALEXION-A200900331

PATIENT
  Sex: Female

DRUGS (1)
  1. SOLIRIS [Suspect]

REACTIONS (2)
  - CYSTITIS [None]
  - INCREASED UPPER AIRWAY SECRETION [None]
